FAERS Safety Report 8124505-5 (Version None)
Quarter: 2012Q1

REPORT INFORMATION
  Report Type: 
  Country: None (occurrence: None)
  Receive Date: 20120209
  Receipt Date: 20120130
  Transmission Date: 20120608
  Serious: Yes (Other)
  Sender: FDA-Public Use
  Company Number: US-ELI_LILLY_AND_COMPANY-US201202000360

PATIENT
  Sex: Male

DRUGS (14)
  1. FISH OIL [Concomitant]
  2. DIOVAN [Concomitant]
  3. FUROSEMIDE [Concomitant]
  4. KLOR-CON [Concomitant]
  5. POTASSIUM CHLORIDE [Concomitant]
  6. COREG [Concomitant]
  7. VITAMIN TAB [Concomitant]
  8. CALCIUM [Concomitant]
  9. ASPIRIN [Concomitant]
     Dosage: 81 MG, UNK
  10. SIMVASTATIN [Concomitant]
  11. ASCORBIC ACID [Concomitant]
  12. WARFARIN SODIUM [Concomitant]
     Indication: BLOOD DISORDER
  13. FORTEO [Suspect]
     Indication: OSTEOPOROSIS
     Dosage: 20 UG, QD
     Route: 065
     Dates: start: 20110614
  14. VITAMIN D [Concomitant]

REACTIONS (10)
  - BLOOD FOLATE DECREASED [None]
  - DRUG DOSE OMISSION [None]
  - BLOOD TEST ABNORMAL [None]
  - OEDEMA PERIPHERAL [None]
  - MULTIPLE MYELOMA [None]
  - NEUROPATHY PERIPHERAL [None]
  - PAIN [None]
  - JOINT SWELLING [None]
  - ARTHRALGIA [None]
  - PSORIATIC ARTHROPATHY [None]
